FAERS Safety Report 7333432-2 (Version None)
Quarter: 2011Q1

REPORT INFORMATION
  Report Type: 
  Country: None (occurrence: None)
  Receive Date: 20110304
  Receipt Date: 20110221
  Transmission Date: 20110831
  Serious: Yes (Other)
  Sender: FDA-Public Use
  Company Number: PHHY2011JP14479

PATIENT
  Age: 32 Year
  Sex: Female

DRUGS (1)
  1. VOLTAREN [Suspect]
     Indication: PAIN
     Dosage: 25 MG, ONCE/SINGLE
     Route: 054
     Dates: start: 20110219, end: 20110219

REACTIONS (4)
  - CONVULSION [None]
  - SHOCK [None]
  - CHILLS [None]
  - BLOOD PRESSURE INCREASED [None]
